APPROVED DRUG PRODUCT: BUDESONIDE
Active Ingredient: BUDESONIDE
Strength: 9MG
Dosage Form/Route: TABLET, EXTENDED RELEASE;ORAL
Application: A208851 | Product #001 | TE Code: AB
Applicant: MYLAN PHARMACEUTICALS INC
Approved: Sep 17, 2020 | RLD: No | RS: No | Type: RX